FAERS Safety Report 17809382 (Version 1)
Quarter: 2020Q2

REPORT INFORMATION
  Report Type: Spontaneous
  Country: CA (occurrence: CA)
  Receive Date: 20200521
  Receipt Date: 20200521
  Transmission Date: 20200714
  Serious: Yes (Hospitalization, Other)
  Sender: FDA-Public Use
  Company Number: CA-AUROBINDO-AUR-APL-2020-025031

PATIENT
  Age: 69 Year
  Sex: Male

DRUGS (38)
  1. ASA [Concomitant]
     Active Substance: ASPIRIN
     Dosage: 80 MILLIGRAM, ONCE A DAY
     Route: 048
  2. ATIVAN [Concomitant]
     Active Substance: LORAZEPAM
     Dosage: 1 MILLIGRAM, ONCE A DAY
     Route: 048
  3. CITALOPRAM [Concomitant]
     Active Substance: CITALOPRAM HYDROBROMIDE
     Indication: PRODUCT USED FOR UNKNOWN INDICATION
     Dosage: 5 MILLIGRAM, ONCE A DAY
     Route: 048
  4. DOCUSATE [Concomitant]
     Active Substance: DOCUSATE
     Dosage: 100 MILLIGRAM, ONCE A DAY
     Route: 048
  5. FAMVIR [Concomitant]
     Active Substance: FAMCICLOVIR
     Indication: ANTIVIRAL PROPHYLAXIS
     Dosage: 250 MILLIGRAM, TWO TIMES A DAY
     Route: 048
  6. EURO-K20 [Concomitant]
     Dosage: 20 MILLIMOLE
     Route: 042
  7. PANTOLOC [Concomitant]
     Active Substance: PANTOPRAZOLE SODIUM
     Dosage: 40 MILLIGRAM
     Route: 048
  8. MELPHALAN. [Suspect]
     Active Substance: MELPHALAN
     Indication: STEM CELL TRANSPLANT
     Dosage: 310 MILLIGRAM, ONCE A DAY
     Route: 042
  9. ATIVAN [Concomitant]
     Active Substance: LORAZEPAM
     Dosage: 1 MILLIGRAM, ONCE A DAY
     Route: 048
  10. DOCUSATE [Concomitant]
     Active Substance: DOCUSATE
     Dosage: 100 MILLIGRAM, TWO TIMES A DAY
     Route: 048
  11. EURO-K20 [Concomitant]
     Dosage: 10 MILLIMOLE
     Route: 065
  12. EURO-K20 [Concomitant]
     Dosage: 20 MILLIMOLE
     Route: 042
  13. EURO-K20 [Concomitant]
     Dosage: 20 MILLIMOLE
     Route: 065
  14. LYRICA [Concomitant]
     Active Substance: PREGABALIN
     Indication: NEURALGIA
     Dosage: 75 MILLIGRAM, TWO TIMES A DAY
     Route: 048
  15. PANTOLOC [Concomitant]
     Active Substance: PANTOPRAZOLE SODIUM
     Indication: GASTROOESOPHAGEAL REFLUX DISEASE
     Dosage: 40 MILLIGRAM, ONCE A DAY
     Route: 048
  16. BUSULFEX [Suspect]
     Active Substance: BUSULFAN
     Indication: STEM CELL TRANSPLANT
     Dosage: 280 MILLIGRAM, ONCE A DAY
     Route: 042
  17. EURO-K20 [Concomitant]
     Indication: HYPOKALAEMIA
     Dosage: 20 MILLIMOLE
     Route: 048
  18. EURO-K20 [Concomitant]
     Dosage: 10 MILLIMOLE
     Route: 048
  19. EURO-K20 [Concomitant]
     Dosage: UNK
     Route: 048
  20. MAGNESIUM [Concomitant]
     Active Substance: MAGNESIUM
     Indication: HYPOMAGNESAEMIA
     Dosage: 250 MILLIGRAM, TWO TIMES A DAY
     Route: 048
  21. ASA [Concomitant]
     Active Substance: ASPIRIN
     Dosage: 80 MILLIGRAM
     Route: 048
  22. ATIVAN [Concomitant]
     Active Substance: LORAZEPAM
     Dosage: 1 MILLIGRAM, ONCE A DAY
     Route: 048
  23. DOCUSATE [Concomitant]
     Active Substance: DOCUSATE
     Indication: FAECES HARD
     Dosage: 100 MILLIGRAM, TWO TIMES A DAY
     Route: 048
  24. EURO-K20 [Concomitant]
     Dosage: 10 MILLIMOLE
     Route: 042
  25. LENALIDOMIDE [Suspect]
     Active Substance: LENALIDOMIDE
     Indication: STEM CELL TRANSPLANT
     Dosage: 10 MILLIGRAM, ONCE A DAY
     Route: 048
  26. ASA [Concomitant]
     Active Substance: ASPIRIN
     Dosage: 80 MILLIGRAM, ONCE A DAY
     Route: 048
  27. CITALOPRAM [Concomitant]
     Active Substance: CITALOPRAM HYDROBROMIDE
     Dosage: 15 MILLIGRAM, ONCE A DAY
     Route: 048
  28. EURO-K20 [Concomitant]
     Dosage: 20 MILLIMOLE, TWO TIMES A DAY
     Route: 048
  29. LYRICA [Concomitant]
     Active Substance: PREGABALIN
     Indication: NEURALGIA
     Dosage: 75 MILLIGRAM, TWO TIMES A DAY
     Route: 048
  30. MORPHINE SULFATE. [Concomitant]
     Active Substance: MORPHINE SULFATE
     Indication: PAIN MANAGEMENT
     Dosage: 10 MILLIGRAM, TWO TIMES A DAY
     Route: 048
  31. ROSUVASTATIN. [Concomitant]
     Active Substance: ROSUVASTATIN
     Indication: HYPERCHOLESTEROLAEMIA
     Dosage: 10 MILLIGRAM, ONCE A DAY
     Route: 048
  32. FAMVIR [Concomitant]
     Active Substance: FAMCICLOVIR
     Indication: ANTIVIRAL PROPHYLAXIS
     Dosage: 250 MILLIGRAM, TWO TIMES A DAY
     Route: 048
  33. LYRICA [Concomitant]
     Active Substance: PREGABALIN
     Dosage: 75 MILLIGRAM
     Route: 048
  34. LYRICA [Concomitant]
     Active Substance: PREGABALIN
     Dosage: 75 MILLIGRAM, TWO TIMES A DAY
     Route: 048
  35. PANTOLOC [Concomitant]
     Active Substance: PANTOPRAZOLE SODIUM
     Indication: GASTROOESOPHAGEAL REFLUX DISEASE
     Dosage: 40 MILLIGRAM, ONCE A DAY
     Route: 048
  36. ASA [Concomitant]
     Active Substance: ASPIRIN
     Indication: PROPHYLAXIS
     Dosage: 81 MILLIGRAM, ONCE A DAY
     Route: 048
  37. ATIVAN [Concomitant]
     Active Substance: LORAZEPAM
     Indication: INSOMNIA
     Dosage: 1 MILLIGRAM, ONCE A DAY
     Route: 048
  38. PANTOLOC [Concomitant]
     Active Substance: PANTOPRAZOLE SODIUM
     Dosage: 40 MILLIGRAM, TWO TIMES A DAY
     Route: 048

REACTIONS (2)
  - Diffuse large B-cell lymphoma [Unknown]
  - Second primary malignancy [Unknown]
